FAERS Safety Report 6567400-5 (Version None)
Quarter: 2010Q1

REPORT INFORMATION
  Report Type: 
  Country: None (occurrence: None)
  Receive Date: 20100128
  Receipt Date: 20100120
  Transmission Date: 20100710
  Serious: Yes (Other)
  Sender: FDA-Public Use
  Company Number: A0840880A

PATIENT
  Age: 49 Year
  Sex: Male

DRUGS (1)
  1. ASPIRIN  +  CAFFEINE + SALICYLAMIDE POWDER [Suspect]
     Dosage: ORAL

REACTIONS (2)
  - DRUG DEPENDENCE [None]
  - NERVOUSNESS [None]
